FAERS Safety Report 8800586 (Version 1)
Quarter: 2012Q4

REPORT INFORMATION
  Report Type: 
  Country: CA (occurrence: CA)
  Receive Date: 20120921
  Receipt Date: 20120921
  Transmission Date: 20130627
  Serious: Yes (Hospitalization)
  Sender: FDA-Public Use
  Company Number: CA-AMGEN-CANSP2012059172

PATIENT
  Age: 36 Year
  Sex: Female
  Weight: 45 kg

DRUGS (1)
  1. NPLATE [Suspect]
     Indication: IDIOPATHIC THROMBOCYTOPENIC PURPURA
     Dosage: 45 UNK, UNK
     Route: 058
     Dates: start: 20111012

REACTIONS (1)
  - General physical health deterioration [Unknown]
